FAERS Safety Report 8250392-0 (Version None)
Quarter: 2012Q2

REPORT INFORMATION
  Report Type: 
  Country: None (occurrence: None)
  Receive Date: 20120402
  Receipt Date: 20120326
  Transmission Date: 20120825
  Serious: No
  Sender: FDA-Public Use
  Company Number: US-JNJFOC-20120308683

PATIENT
  Sex: Female
  Weight: 92 kg

DRUGS (40)
  1. CARTIA XT [Concomitant]
     Indication: CORONARY ARTERY DISEASE
     Route: 048
     Dates: start: 20020101
  2. POTASSIUM CHLORIDE [Concomitant]
     Indication: CORONARY ARTERY DISEASE
     Route: 048
     Dates: start: 20040301
  3. MS CONTIN [Concomitant]
     Route: 048
     Dates: start: 20041201, end: 20080215
  4. PLACEBO [Suspect]
     Indication: RHEUMATOID ARTHRITIS
     Route: 058
     Dates: start: 20070126, end: 20070419
  5. LANOXIN [Concomitant]
     Indication: ARRHYTHMIA
     Route: 048
     Dates: start: 20020101
  6. LASIX [Concomitant]
     Route: 048
     Dates: start: 20080416, end: 20080516
  7. ZOCOR [Concomitant]
     Route: 048
     Dates: start: 20081031
  8. PREMARIN [Concomitant]
     Indication: HORMONE REPLACEMENT THERAPY
     Route: 048
     Dates: start: 20050301, end: 20090315
  9. DIOVAN [Concomitant]
     Route: 048
     Dates: start: 20071015, end: 20080114
  10. METHOTREXATE [Concomitant]
     Route: 048
     Dates: start: 20100621, end: 20101011
  11. GOLIMUMAB [Suspect]
     Route: 058
     Dates: start: 20070517
  12. OXYCODONE HCL [Concomitant]
     Route: 048
     Dates: start: 20080119, end: 20080128
  13. SULFASALAZINE [Concomitant]
     Indication: RHEUMATOID ARTHRITIS
     Route: 048
     Dates: start: 19990101
  14. ZOCOR [Concomitant]
     Route: 048
     Dates: start: 20040301, end: 20081030
  15. FOSAMAX [Concomitant]
     Indication: OSTEOPOROSIS
     Route: 048
     Dates: start: 20040401, end: 20081030
  16. ALBUTEROL [Concomitant]
     Route: 055
     Dates: start: 20071227
  17. METHOTREXATE [Concomitant]
     Route: 048
     Dates: start: 20101206
  18. LANOXIN [Concomitant]
     Indication: CORONARY ARTERY DISEASE
     Route: 048
     Dates: start: 20020101
  19. LASIX [Concomitant]
     Route: 048
     Dates: start: 20020301, end: 20080415
  20. PREDNISONE TAB [Concomitant]
     Indication: RHEUMATOID ARTHRITIS
     Route: 048
     Dates: start: 20070613
  21. PREDNISONE TAB [Concomitant]
     Route: 048
     Dates: start: 20050101, end: 20070215
  22. PREDNISONE TAB [Concomitant]
     Route: 048
     Dates: start: 20070608, end: 20070612
  23. DIOVAN [Concomitant]
     Route: 048
     Dates: start: 20081031
  24. METHOTREXATE [Concomitant]
     Route: 048
     Dates: start: 20091030, end: 20100524
  25. SYNTHROID [Concomitant]
     Indication: HYPOTHYROIDISM
     Route: 048
     Dates: start: 19600101
  26. LASIX [Concomitant]
     Route: 048
     Dates: start: 20080517
  27. PREDNISONE TAB [Concomitant]
     Route: 048
     Dates: start: 20070220, end: 20070607
  28. DIOVAN [Concomitant]
     Route: 048
     Dates: start: 20080115, end: 20080130
  29. DIOVAN [Concomitant]
     Route: 048
     Dates: start: 20080131, end: 20081030
  30. OXYCODONE HCL [Concomitant]
     Route: 048
     Dates: start: 20080129, end: 20080204
  31. CLOBETASOL PROPIONATE [Concomitant]
     Route: 061
     Dates: start: 20090111
  32. VITAMIN B-12 [Concomitant]
     Route: 048
     Dates: start: 20090518
  33. GOLIMUMAB [Suspect]
     Indication: RHEUMATOID ARTHRITIS
     Route: 058
     Dates: start: 20100805
  34. FOLIC ACID [Concomitant]
     Route: 048
     Dates: start: 19990101
  35. AMIODARONE HCL [Concomitant]
     Indication: ARRHYTHMIA
     Route: 048
     Dates: start: 20020101
  36. PREVACID [Concomitant]
     Indication: GASTROOESOPHAGEAL REFLUX DISEASE
     Route: 048
     Dates: start: 20020101
  37. PREDNISONE TAB [Concomitant]
     Route: 048
     Dates: start: 20070212, end: 20070216
  38. PREDNISONE TAB [Concomitant]
     Route: 048
     Dates: start: 20070217, end: 20070219
  39. ASPIRIN [Concomitant]
     Indication: CARDIOVASCULAR EVENT PROPHYLAXIS
     Route: 048
     Dates: start: 20050301
  40. METHOTREXATE [Concomitant]
     Route: 048
     Dates: start: 20090803, end: 20091029

REACTIONS (1)
  - SQUAMOUS CELL CARCINOMA [None]
